FAERS Safety Report 11718480 (Version 1)
Quarter: 2015Q4

REPORT INFORMATION
  Report Type: Spontaneous
  Country: CN (occurrence: CN)
  Receive Date: 20151110
  Receipt Date: 20151110
  Transmission Date: 20160304
  Serious: Yes (Death, Hospitalization)
  Sender: FDA-Public Use
  Company Number: CN-ASTELLAS-2015US041646

PATIENT
  Age: 57 Year
  Sex: Female

DRUGS (2)
  1. PROGRAF [Suspect]
     Active Substance: TACROLIMUS\TACROLIMUS ANHYDROUS
     Indication: GLOMERULONEPHRITIS MEMBRANOUS
     Dosage: 2 MG, TWICE DAILY
     Route: 048
     Dates: start: 201412, end: 201502
  2. PROGRAF [Suspect]
     Active Substance: TACROLIMUS\TACROLIMUS ANHYDROUS
     Dosage: 6 MG, TWICE DAILY
     Route: 048
     Dates: start: 201502, end: 201504

REACTIONS (5)
  - Death [Fatal]
  - Pneumonia [Unknown]
  - Respiratory distress [Unknown]
  - Oedema peripheral [Recovering/Resolving]
  - Oedema peripheral [Unknown]

NARRATIVE: CASE EVENT DATE: 201501
